FAERS Safety Report 4803505-4 (Version None)
Quarter: 2005Q4

REPORT INFORMATION
  Report Type: 
  Country: None (occurrence: None)
  Receive Date: 20051014
  Receipt Date: 20050929
  Transmission Date: 20060501
  Serious: Yes (Other)
  Sender: FDA-Public Use
  Company Number: S05-SWI-03647-01

PATIENT
  Age: 52 Year
  Sex: Female

DRUGS (7)
  1. CIPRALEX                                   (ESCITALOPRAM) [Suspect]
     Indication: ANXIETY
     Dosage: 10 MG TID PO
     Route: 048
     Dates: start: 20050425, end: 20050425
  2. CIPRALEX (ESCITALOPRAM) [Suspect]
     Indication: ANXIETY
     Dosage: 10 MG QD PO
     Route: 048
     Dates: start: 20050426
  3. ZYPREXA [Suspect]
     Indication: PANIC DISORDER
     Dosage: 5 MG QD PO
     Route: 048
     Dates: start: 20050421
  4. DORMICUM (NITRAZEPAM) [Suspect]
     Indication: ANXIETY
     Dosage: 15 MG BID PO
     Route: 048
     Dates: start: 20040101, end: 20050425
  5. DORMICUM (NITRAZEPAM) [Suspect]
     Indication: ANXIETY
     Dosage: 15 MG QD PO
     Route: 048
     Dates: start: 20050426
  6. PROCYCLIDINE HYDROCHLORIDE 5MG TAB [Concomitant]
  7. VALIUM [Concomitant]

REACTIONS (3)
  - DIZZINESS [None]
  - LOSS OF CONSCIOUSNESS [None]
  - MYOCLONUS [None]
